FAERS Safety Report 21070205 (Version 2)
Quarter: 2022Q3

REPORT INFORMATION
  Report Type: Spontaneous
  Country: FR (occurrence: FR)
  Receive Date: 20220712
  Receipt Date: 20220713
  Transmission Date: 20221027
  Serious: Yes (Other)
  Sender: FDA-Public Use
  Company Number: FR-VER-202200041

PATIENT
  Age: 8 Year
  Sex: Female

DRUGS (1)
  1. TRIPTORELIN [Suspect]
     Active Substance: TRIPTORELIN
     Indication: Precocious puberty
     Route: 030
     Dates: start: 202006

REACTIONS (1)
  - Urticaria chronic [Recovering/Resolving]

NARRATIVE: CASE EVENT DATE: 20210601
